FAERS Safety Report 9913194 (Version 1)
Quarter: 2014Q1

REPORT INFORMATION
  Report Type: Spontaneous
  Country: US (occurrence: None)
  Receive Date: 20140218
  Receipt Date: 20140218
  Transmission Date: 20141002
  Serious: Yes (Other)
  Sender: FDA-Public Use
  Company Number: None

PATIENT
  Age: 54 Year
  Sex: Female
  Weight: 72.58 kg

DRUGS (1)
  1. ZOLPIDEM [Suspect]

REACTIONS (4)
  - Headache [None]
  - Rash [None]
  - Somnolence [None]
  - No therapeutic response [None]
